FAERS Safety Report 4594114-3 (Version None)
Quarter: 2005Q1

REPORT INFORMATION
  Report Type: 
  Country: None (occurrence: None)
  Receive Date: 20050222
  Receipt Date: 20050203
  Transmission Date: 20050727
  Serious: Yes (Hospitalization)
  Sender: FDA-Public Use
  Company Number: S04-IRL-07963-01

PATIENT
  Age: 25 Year
  Sex: Male

DRUGS (16)
  1. ACAMPROSATE [Suspect]
     Indication: OVERDOSE
     Dosage: 7992 MG ONCE PO
     Route: 048
  2. ACAMPROSATE [Suspect]
     Dosage: 666 MG TID PO
     Route: 048
     Dates: start: 20030701
  3. METFORMIN [Suspect]
     Indication: OVERDOSE
     Dosage: 8000 MG ONCE PO
     Route: 048
  4. METFORMIN [Suspect]
     Indication: DIABETES MELLITUS
     Dosage: 1000 MG BID PO
     Route: 048
  5. ZOPICLONE [Suspect]
     Indication: OVERDOSE
     Dosage: 60 MG ONCE PO
     Route: 048
  6. ZOPICLONE [Suspect]
  7. SULPRID (SULPIRIDE) [Suspect]
     Indication: OVERDOSE
     Dosage: 6400 MG ONCE PO
     Route: 048
  8. SULPRID (SULPIRIDE) [Suspect]
  9. VENLAFAXINE HCL [Suspect]
     Indication: OVERDOSE
     Dosage: 600 MG ONCE PO
     Route: 048
  10. VENLAFAXINE HCL [Suspect]
  11. LAMOTRIGINE [Suspect]
     Indication: OVERDOSE
     Dosage: 1200 MG ONCE PO
     Route: 048
  12. LAMOTRIGINE [Suspect]
  13. ATENOLOL [Suspect]
     Indication: OVERDOSE
     Dosage: 100 MG ONCE PO
     Route: 048
  14. ATENOLOL [Suspect]
  15. CLOZARIL [Suspect]
     Indication: OVERDOSE
     Dosage: 2700 MG ONCE PO
     Route: 048
  16. CLOZARIL [Suspect]

REACTIONS (7)
  - DIABETES MELLITUS [None]
  - INTENTIONAL MISUSE [None]
  - METABOLIC ACIDOSIS [None]
  - SCHIZOPHRENIA [None]
  - SEDATION [None]
  - SOMNOLENCE [None]
  - SUICIDE ATTEMPT [None]
